FAERS Safety Report 21160742 (Version 1)
Quarter: 2022Q3

REPORT INFORMATION
  Report Type: Spontaneous
  Country: US (occurrence: None)
  Receive Date: 20220801
  Receipt Date: 20220801
  Transmission Date: 20221027
  Serious: Yes (Hospitalization)
  Sender: FDA-Public Use
  Company Number: None

PATIENT
  Age: 69 Year
  Sex: Male
  Weight: 83.91 kg

DRUGS (2)
  1. EMPAGLIFLOZIN [Suspect]
     Active Substance: EMPAGLIFLOZIN
     Indication: Diabetes mellitus
     Dosage: FREQUENCY : DAILY;?
     Route: 048
     Dates: start: 20180202
  2. METFORMIN [Suspect]
     Active Substance: METFORMIN HYDROCHLORIDE
     Indication: Diabetes mellitus
     Dosage: FREQUENCY : TWICE A DAY;?
     Route: 048
     Dates: start: 20160823

REACTIONS (8)
  - Acute kidney injury [None]
  - Metabolic acidosis [None]
  - Dehydration [None]
  - Hyperkalaemia [None]
  - Lactic acidosis [None]
  - Euglycaemic diabetic ketoacidosis [None]
  - Toxicity to various agents [None]
  - Gastrointestinal bacterial overgrowth [None]

NARRATIVE: CASE EVENT DATE: 20220530
